FAERS Safety Report 8536664-0 (Version None)
Quarter: 2012Q3

REPORT INFORMATION
  Report Type: 
  Country: None (occurrence: None)
  Receive Date: 20120725
  Receipt Date: 20120717
  Transmission Date: 20120928
  Serious: Yes (Other)
  Sender: FDA-Public Use
  Company Number: US-MSD-1207USA009197

PATIENT

DRUGS (4)
  1. TELAPREVIR [Suspect]
     Indication: HEPATITIS C
     Dosage: UNK
     Dates: start: 20120420, end: 20120712
  2. REBETOL [Suspect]
     Indication: HEPATITIS C
     Dosage: 5 A DAY
     Dates: start: 20120420
  3. PEG-INTRON [Suspect]
     Indication: HEPATITIS C
     Dosage: UNK
     Dates: start: 20120420
  4. REBETOL [Suspect]
     Dosage: 3 A DAY

REACTIONS (1)
  - HAEMOGLOBIN DECREASED [None]
